FAERS Safety Report 6967475-5 (Version None)
Quarter: 2010Q3

REPORT INFORMATION
  Report Type: 
  Country: None (occurrence: None)
  Receive Date: 20100901
  Receipt Date: 20100824
  Transmission Date: 20110219
  Serious: Yes (Other)
  Sender: FDA-Public Use
  Company Number: 2010SP046079

PATIENT
  Age: 4 Year
  Sex: Male
  Weight: 17 kg

DRUGS (2)
  1. AERIUS (DESCLORATADINE /01398501/) [Suspect]
     Indication: ASTHMA
     Dates: start: 20070101
  2. ECOBEC (BECLOMETASONE DIPROPIONATE) [Suspect]
     Indication: ASTHMA
     Dosage: BID
     Dates: start: 20070101

REACTIONS (1)
  - GROWTH RETARDATION [None]
